FAERS Safety Report 5593932-2 (Version None)
Quarter: 2008Q1

REPORT INFORMATION
  Report Type: 
  Country: None (occurrence: None)
  Receive Date: 20080116
  Receipt Date: 20080108
  Transmission Date: 20080703
  Serious: Yes (Disabling)
  Sender: FDA-Public Use
  Company Number: US-BAXTER-2008BH000222

PATIENT
  Age: 46 Year
  Sex: Female

DRUGS (6)
  1. MORPHINE SULFATE [Suspect]
     Indication: BACK PAIN
     Dosage: DOSE UNIT:UNKNOWN
     Route: 030
     Dates: start: 20071006, end: 20071006
  2. CORTISONE [Suspect]
     Indication: BACK PAIN
     Dosage: DOSE UNIT:UNKNOWN
     Route: 065
     Dates: start: 20071006, end: 20071006
  3. CONTRAST DYE [Suspect]
     Indication: BACK PAIN
     Route: 042
     Dates: start: 20070101, end: 20070101
  4. VITAMIN B-12 [Concomitant]
     Indication: VITAMIN B12 DEFICIENCY
     Dosage: DOSE UNIT:UNKNOWN
     Route: 048
     Dates: start: 20071001
  5. ZESTRIL [Concomitant]
     Indication: HYPERTENSION
     Dosage: DOSE UNIT:UNKNOWN
     Route: 048
  6. METOPROLOL [Concomitant]
     Indication: TACHYCARDIA
     Route: 048

REACTIONS (2)
  - MYOCLONUS [None]
  - TREMOR [None]
